FAERS Safety Report 8317975-0 (Version None)
Quarter: 2012Q2

REPORT INFORMATION
  Report Type: 
  Country: None (occurrence: None)
  Receive Date: 20120427
  Receipt Date: 20120424
  Transmission Date: 20120825
  Serious: No
  Sender: FDA-Public Use
  Company Number: US-BAYER-2012-040796

PATIENT

DRUGS (3)
  1. IBUPROFEN (ADVIL) [Concomitant]
  2. TYLENOL REGULAR [Concomitant]
  3. ALEVE [Suspect]
     Indication: ANALGESIC THERAPY
     Route: 048

REACTIONS (1)
  - PAIN [None]
